FAERS Safety Report 13202975 (Version 1)
Quarter: 2017Q1

REPORT INFORMATION
  Report Type: Spontaneous
  Country: US (occurrence: US)
  Receive Date: 20170209
  Receipt Date: 20170209
  Transmission Date: 20170428
  Serious: No
  Sender: FDA-Public Use
  Company Number: US-MYLANLABS-2016M1018589

PATIENT
  Age: 66 Year
  Sex: Female

DRUGS (1)
  1. METOPROLOL SUCCINATE EXTENDED-RELEASE TABLETS, USP [Suspect]
     Active Substance: METOPROLOL SUCCINATE
     Indication: BLOOD PRESSURE MANAGEMENT
     Dosage: 50 MG, QD
     Route: 048
     Dates: start: 201604

REACTIONS (1)
  - Heart rate increased [Not Recovered/Not Resolved]

NARRATIVE: CASE EVENT DATE: 201604
